FAERS Safety Report 20730140 (Version 1)
Quarter: 2022Q2

REPORT INFORMATION
  Report Type: Spontaneous
  Country: FR (occurrence: FR)
  Receive Date: 20220420
  Receipt Date: 20220420
  Transmission Date: 20220721
  Serious: Yes (Other)
  Sender: FDA-Public Use
  Company Number: None

PATIENT
  Age: 78 Year
  Sex: Male
  Weight: 97 kg

DRUGS (6)
  1. CYCLOPHOSPHAMIDE [Suspect]
     Active Substance: CYCLOPHOSPHAMIDE
     Indication: Adult T-cell lymphoma/leukaemia
     Dosage: 750 MG/M2 (TOTAL 1500 MG) ON D1
     Route: 041
     Dates: start: 20220317, end: 20220317
  2. CYCLOPHOSPHAMIDE [Suspect]
     Active Substance: CYCLOPHOSPHAMIDE
     Dosage: 750 MG/M2 (TOTAL 1500 MG) ON D1
     Route: 041
     Dates: start: 20220303, end: 20220303
  3. VINCRISTINE [Suspect]
     Active Substance: VINCRISTINE
     Indication: Adult T-cell lymphoma/leukaemia
     Dosage: 1.40 MG/M2 (TOTAL 2 MG) ON D1, 2MG/2ML
     Route: 041
     Dates: start: 20220317, end: 20220317
  4. VINCRISTINE [Suspect]
     Active Substance: VINCRISTINE
     Dosage: 1.40 MG/M2 (TOTAL 2 MG) ON D1
     Route: 041
     Dates: start: 20220303, end: 20220303
  5. RITUXIMAB [Suspect]
     Active Substance: RITUXIMAB
     Indication: Adult T-cell lymphoma/leukaemia
     Dosage: 100 MG/M2 (200MG, PRESCRIBED OVER ALL)
     Route: 041
     Dates: start: 20220307, end: 20220307
  6. RITUXIMAB [Suspect]
     Active Substance: RITUXIMAB
     Dosage: 375 MG/M2 (750 MG, PRESCRIBED OVER ALL)
     Route: 041
     Dates: start: 20220316, end: 20220316

REACTIONS (1)
  - Cytokine release syndrome [Recovering/Resolving]

NARRATIVE: CASE EVENT DATE: 20220317
